FAERS Safety Report 14882121 (Version 1)
Quarter: 2018Q2

REPORT INFORMATION
  Report Type: Spontaneous
  Country: US (occurrence: US)
  Receive Date: 20180425
  Receipt Date: 20180425
  Transmission Date: 20180711
  Serious: Yes (Death, Hospitalization)
  Sender: FDA-Public Use
  Company Number: None

PATIENT
  Age: 6 Year
  Sex: Male
  Weight: 23.8 kg

DRUGS (5)
  1. METHOTREXATE. [Suspect]
     Active Substance: METHOTREXATE
     Dates: end: 20160913
  2. CYTARABINE. [Suspect]
     Active Substance: CYTARABINE
     Dates: end: 20160814
  3. DEXAMETHASONE. [Suspect]
     Active Substance: DEXAMETHASONE
     Dates: end: 20160912
  4. ONCASPAR [Suspect]
     Active Substance: PEGASPARGASE
     Dates: end: 20160818
  5. VINCRISTINE SULFATE. [Suspect]
     Active Substance: VINCRISTINE SULFATE
     Dates: end: 20160906

REACTIONS (15)
  - Hypoxia [None]
  - Oropharyngeal pain [None]
  - Leukocytosis [None]
  - Acute myelomonocytic leukaemia [None]
  - Right ventricular failure [None]
  - Acute respiratory distress syndrome [None]
  - Tachycardia [None]
  - Computerised tomogram thorax abnormal [None]
  - Pyrexia [None]
  - Tachypnoea [None]
  - Acute myeloid leukaemia [None]
  - Cardio-respiratory arrest [None]
  - Infection [None]
  - Sepsis [None]
  - Disease recurrence [None]

NARRATIVE: CASE EVENT DATE: 20180408
